FAERS Safety Report 25331981 (Version 1)
Quarter: 2025Q2

REPORT INFORMATION
  Report Type: Other
  Country: TR (occurrence: TR)
  Receive Date: 20250519
  Receipt Date: 20250519
  Transmission Date: 20250716
  Serious: Yes (Other)
  Sender: VISTAPHARM
  Company Number: TR-Vista Pharmaceuticals Inc.-2176916

PATIENT
  Age: 34 Year
  Sex: Male

DRUGS (8)
  1. SULFAMETHOXAZOLE\TRIMETHOPRIM [Suspect]
     Active Substance: SULFAMETHOXAZOLE\TRIMETHOPRIM
     Indication: Antifungal prophylaxis
  2. CYTARABINE [Concomitant]
     Active Substance: CYTARABINE
  3. CYCLOSPORINE [Concomitant]
     Active Substance: CYCLOSPORINE
  4. METHOTREXATE [Concomitant]
     Active Substance: METHOTREXATE
  5. DEXAMETHASONE [Concomitant]
     Active Substance: DEXAMETHASONE
  6. CYTARABINE [Concomitant]
     Active Substance: CYTARABINE
  7. MITOXANTRONE [Concomitant]
     Active Substance: MITOXANTRONE HYDROCHLORIDE
  8. DAUNORUBICIN HYDROCHLORIDE [Concomitant]
     Active Substance: DAUNORUBICIN HYDROCHLORIDE

REACTIONS (1)
  - Acute graft versus host disease in skin [Recovered/Resolved]
